FAERS Safety Report 7313873-X (Version None)
Quarter: 2011Q1

REPORT INFORMATION
  Report Type: 
  Country: None (occurrence: None)
  Receive Date: 20110225
  Receipt Date: 20110218
  Transmission Date: 20110831
  Serious: Yes (Hospitalization)
  Sender: FDA-Public Use
  Company Number: NL-MEDIMMUNE-MEDI-0012684

PATIENT
  Sex: Female
  Weight: 8.5 kg

DRUGS (3)
  1. SYNAGIS [Suspect]
     Route: 030
     Dates: start: 20100906, end: 20110117
  2. SYNAGIS [Suspect]
     Route: 030
     Dates: start: 20110218
  3. TBC VACCINATION [Concomitant]

REACTIONS (5)
  - PYREXIA [None]
  - CIRCADIAN RHYTHM SLEEP DISORDER [None]
  - DYSPNOEA [None]
  - SENSE OF OPPRESSION [None]
  - COUGH [None]
